FAERS Safety Report 12578281 (Version 1)
Quarter: 2016Q3

REPORT INFORMATION
  Report Type: Spontaneous
  Country: US (occurrence: None)
  Receive Date: 20160720
  Receipt Date: 20160720
  Transmission Date: 20161109
  Serious: No
  Sender: FDA-Public Use
  Company Number: None

PATIENT
  Age: 75 Year
  Sex: Female
  Weight: 72.58 kg

DRUGS (6)
  1. COQ10 [Concomitant]
     Active Substance: UBIDECARENONE
  2. PENTOXIFYLLINE 400 MG TAB APOT [Suspect]
     Active Substance: PENTOXIFYLLINE
     Indication: PERIPHERAL VENOUS DISEASE
     Dates: start: 20160521, end: 20160528
  3. METOPROLOL. [Concomitant]
     Active Substance: METOPROLOL
  4. SYNTHROID [Concomitant]
     Active Substance: LEVOTHYROXINE SODIUM
  5. MULTIVITAMIN [Concomitant]
     Active Substance: VITAMINS
  6. VITAMIN D [Concomitant]
     Active Substance: CHOLECALCIFEROL

REACTIONS (4)
  - Gastrointestinal disorder [None]
  - Mouth ulceration [None]
  - Gastrointestinal pain [None]
  - Stomatitis [None]

NARRATIVE: CASE EVENT DATE: 20160528
